FAERS Safety Report 21499030 (Version 1)
Quarter: 2022Q4

REPORT INFORMATION
  Report Type: Spontaneous
  Country: JP (occurrence: JP)
  Receive Date: 20221024
  Receipt Date: 20221024
  Transmission Date: 20230113
  Serious: Yes (Other)
  Sender: FDA-Public Use
  Company Number: JP-ELI_LILLY_AND_COMPANY-JP202210007188

PATIENT
  Age: 27 Year
  Sex: Female

DRUGS (2)
  1. CYRAMZA [Suspect]
     Active Substance: RAMUCIRUMAB
     Indication: Small intestine carcinoma
     Route: 041
  2. IRINOTECAN [Suspect]
     Active Substance: IRINOTECAN
     Indication: Small intestine carcinoma
     Route: 065

REACTIONS (4)
  - Cardiomyopathy [Unknown]
  - Cardiac failure [Unknown]
  - Malignant neoplasm progression [Unknown]
  - Proteinuria [Unknown]
